FAERS Safety Report 11512396 (Version 2)
Quarter: 2015Q4

REPORT INFORMATION
  Report Type: Spontaneous
  Country: CH (occurrence: CH)
  Receive Date: 20150914
  Receipt Date: 20151228
  Transmission Date: 20160304
  Serious: Yes (Hospitalization)
  Sender: FDA-Public Use
  Company Number: 2015CH0512

PATIENT
  Age: 70 Year
  Sex: Female
  Weight: 60 kg

DRUGS (4)
  1. NSAID [Concomitant]
     Active Substance: UNSPECIFIED INGREDIENT
  2. LODOTRA [Concomitant]
     Active Substance: PREDNISONE
  3. KINERET [Suspect]
     Active Substance: ANAKINRA
     Indication: CHONDROCALCINOSIS PYROPHOSPHATE
     Route: 058
     Dates: start: 20150716
  4. LODINE [Concomitant]
     Active Substance: ETODOLAC

REACTIONS (1)
  - Colitis [Recovered/Resolved]

NARRATIVE: CASE EVENT DATE: 20150824
